FAERS Safety Report 7637814-0 (Version None)
Quarter: 2011Q3

REPORT INFORMATION
  Report Type: 
  Country: None (occurrence: None)
  Receive Date: 20110718
  Receipt Date: 20110711
  Transmission Date: 20111222
  Serious: Yes (Hospitalization)
  Sender: FDA-Public Use
  Company Number: 2011029165

PATIENT
  Age: 45 Year
  Sex: Female
  Weight: 79.3795 kg

DRUGS (18)
  1. ZYVOX [Concomitant]
  2. DILAUDID [Concomitant]
  3. METOCLOPRAMIDE [Concomitant]
  4. LASIX [Concomitant]
  5. PANTOPRAZOLE [Concomitant]
  6. HIZENTRA [Suspect]
     Indication: IMMUNODEFICIENCY COMMON VARIABLE
     Dosage: (7 G 2X/WEEK, 1 GM 5 ML VIAL; 25 ML IN 3-4 SITES SUBCUTANEOUS), (7 G 1X/WEEK SUBCUTANEOUS)
     Route: 058
     Dates: start: 20110710
  7. HIZENTRA [Suspect]
     Indication: IMMUNODEFICIENCY COMMON VARIABLE
     Dosage: (7 G 2X/WEEK, 1 GM 5 ML VIAL; 25 ML IN 3-4 SITES SUBCUTANEOUS), (7 G 1X/WEEK SUBCUTANEOUS)
     Route: 058
     Dates: start: 20110710
  8. HIZENTRA [Suspect]
     Indication: IMMUNODEFICIENCY COMMON VARIABLE
     Dosage: (7 G 2X/WEEK, 1 GM 5 ML VIAL; 25 ML IN 3-4 SITES SUBCUTANEOUS), (7 G 1X/WEEK SUBCUTANEOUS)
     Route: 058
     Dates: start: 20110222
  9. HIZENTRA [Suspect]
     Indication: IMMUNODEFICIENCY COMMON VARIABLE
     Dosage: (7 G 2X/WEEK, 1 GM 5 ML VIAL; 25 ML IN 3-4 SITES SUBCUTANEOUS), (7 G 1X/WEEK SUBCUTANEOUS)
     Route: 058
     Dates: start: 20110710
  10. POTASSIUM CHLORIDE [Concomitant]
  11. AMLODIPINE [Concomitant]
  12. HIZENTRA [Suspect]
  13. FENTANYL [Concomitant]
  14. VERAPAMIL [Concomitant]
  15. SYNTHROID [Concomitant]
  16. HIZENTRA [Suspect]
  17. PERCOCET [Concomitant]
  18. LIBRAX [Concomitant]

REACTIONS (10)
  - INFUSION RELATED REACTION [None]
  - ABDOMINAL TENDERNESS [None]
  - CHILLS [None]
  - HEART RATE INCREASED [None]
  - PALPITATIONS [None]
  - DYSPNOEA [None]
  - URINARY TRACT INFECTION [None]
  - ANXIETY [None]
  - KIDNEY INFECTION [None]
  - ADRENOCORTICAL INSUFFICIENCY ACUTE [None]
